FAERS Safety Report 4431853-9 (Version None)
Quarter: 2004Q3

REPORT INFORMATION
  Report Type: 
  Country: None (occurrence: None)
  Receive Date: 20040819
  Receipt Date: 20040804
  Transmission Date: 20050211
  Serious: Yes (Other)
  Sender: FDA-Public Use
  Company Number: 202617

PATIENT
  Age: 56 Year
  Sex: Female

DRUGS (1)
  1. AVONEX [Suspect]
     Indication: MULTIPLE SCLEROSIS
     Dosage: 30 MCG QW IM
     Route: 030
     Dates: start: 20021101

REACTIONS (6)
  - ASTHENIA [None]
  - CARDIAC MURMUR [None]
  - FATIGUE [None]
  - HEART VALVE INSUFFICIENCY [None]
  - HYPOVENTILATION [None]
  - SLEEP DISORDER [None]
